FAERS Safety Report 4642543-1 (Version None)
Quarter: 2005Q2

REPORT INFORMATION
  Report Type: 
  Country: None (occurrence: None)
  Receive Date: 20050422
  Receipt Date: 20050302
  Transmission Date: 20051028
  Serious: Yes (Death)
  Sender: FDA-Public Use
  Company Number: PHEH2005US02692

PATIENT
  Age: 34 Year
  Sex: Male

DRUGS (4)
  1. GLEEVEC [Suspect]
     Indication: CHRONIC MYELOID LEUKAEMIA
     Dosage: 400 MG, QD
     Route: 048
     Dates: start: 20050216, end: 20050218
  2. PHENERGAN [Concomitant]
     Indication: NAUSEA
     Dosage: 25 MG, PRN4SD
     Dates: start: 20050109
  3. DARVOCET-N 100 [Concomitant]
     Indication: MYALGIA
  4. VALIUM [Concomitant]
     Indication: ANXIETY
     Dosage: 25 MG, TID PRN
     Route: 048
     Dates: start: 20050118

REACTIONS (4)
  - ASTHENIA [None]
  - DEATH [None]
  - FEELING ABNORMAL [None]
  - HAEMORRHAGE [None]
